FAERS Safety Report 18678895 (Version 3)
Quarter: 2021Q2

REPORT INFORMATION
  Report Type: Spontaneous
  Country: FR (occurrence: FR)
  Receive Date: 20201230
  Receipt Date: 20210412
  Transmission Date: 20210717
  Serious: Yes (Hospitalization)
  Sender: FDA-Public Use
  Company Number: FR-SA-2020SA373306

PATIENT
  Age: 77 Year
  Sex: Male
  Weight: 74 kg

DRUGS (16)
  1. RIFADINE [Suspect]
     Active Substance: RIFAMPIN
     Indication: MEDICAL DEVICE SITE ABSCESS
     Dosage: 600 MG, QD
     Route: 042
     Dates: start: 20201126, end: 20201207
  2. ATORVASTATIN [Suspect]
     Active Substance: ATORVASTATIN
     Indication: HYPERCHOLESTEROLAEMIA
     Dosage: 40 MG, QD
     Route: 048
     Dates: start: 20201115
  3. DAPTOMYCIN MEDAC [Suspect]
     Active Substance: DAPTOMYCIN
     Indication: MEDICAL DEVICE SITE ABSCESS
     Dosage: 700 MG, QD
     Dates: start: 20201126, end: 20201207
  4. TEMERIT [Concomitant]
     Active Substance: NEBIVOLOL
  5. NOVONORM [Concomitant]
     Active Substance: REPAGLINIDE
  6. CRESTOR [Concomitant]
     Active Substance: ROSUVASTATIN CALCIUM
  7. MEROPENEM. [Suspect]
     Active Substance: MEROPENEM
     Indication: MEDICAL DEVICE SITE ABSCESS
     Dosage: 3 G, QD
     Route: 042
     Dates: start: 20201207, end: 20201215
  8. FUMAFER [Concomitant]
     Active Substance: FERROUS FUMARATE
  9. LANSOPRAZOLE. [Concomitant]
     Active Substance: LANSOPRAZOLE
  10. LEDERFOLINE [Concomitant]
     Active Substance: LEUCOVORIN CALCIUM
  11. METFORMINE HCL [Concomitant]
     Active Substance: METFORMIN HYDROCHLORIDE
  12. AMIODARONE HYDROCHLORIDE. [Suspect]
     Active Substance: AMIODARONE HYDROCHLORIDE
     Indication: ATRIAL FIBRILLATION
     Dosage: 200 MG, QD
     Route: 048
  13. KARDEGIC [Suspect]
     Active Substance: ASPIRIN DL-LYSINE
     Indication: PLATELET AGGREGATION INHIBITION
     Dosage: 75 MG, QD
     Dates: start: 20201114
  14. FUROSEMIDE. [Suspect]
     Active Substance: FUROSEMIDE
     Indication: POLYURIA
     Dosage: 30 MG, QD
     Route: 048
     Dates: start: 20201210
  15. AMLOR [Concomitant]
     Active Substance: AMLODIPINE BESYLATE
  16. DUOPLAVIN [Concomitant]
     Active Substance: ASPIRIN\CLOPIDOGREL

REACTIONS (1)
  - Encephalopathy [Recovering/Resolving]

NARRATIVE: CASE EVENT DATE: 20201213
